FAERS Safety Report 16034681 (Version 1)
Quarter: 2019Q1

REPORT INFORMATION
  Report Type: Spontaneous
  Country: GB (occurrence: GB)
  Receive Date: 20190305
  Receipt Date: 20190305
  Transmission Date: 20190418
  Serious: Yes (Hospitalization)
  Sender: FDA-Public Use
  Company Number: GB-TEVA-2019-GB-1018219

PATIENT
  Sex: Male

DRUGS (11)
  1. BISOPROLOL [Concomitant]
     Active Substance: BISOPROLOL
  2. BIMATOPROST. [Concomitant]
     Active Substance: BIMATOPROST
  3. TIMOLOL. [Concomitant]
     Active Substance: TIMOLOL
  4. ACETYLSALICYLIC ACID [Concomitant]
     Active Substance: ASPIRIN
  5. TICAGRELOR. [Concomitant]
     Active Substance: TICAGRELOR
  6. OMEPRAZOLE. [Concomitant]
     Active Substance: OMEPRAZOLE
  7. RAMIPRIL. [Concomitant]
     Active Substance: RAMIPRIL
  8. DORZOLAMIDE [Concomitant]
     Active Substance: DORZOLAMIDE
  9. SALBUTAMOL [Concomitant]
     Active Substance: ALBUTEROL
  10. ATORVASTATIN [Suspect]
     Active Substance: ATORVASTATIN
     Dosage: 80 MILLIGRAM DAILY; AT NIGHT.
     Route: 048
     Dates: start: 20190110, end: 20190130
  11. GLYCERYL TRINITRATE [Concomitant]
     Active Substance: NITROGLYCERIN

REACTIONS (1)
  - Hepatic function abnormal [Recovering/Resolving]
